FAERS Safety Report 14475797 (Version 2)
Quarter: 2018Q1

REPORT INFORMATION
  Report Type: Spontaneous
  Country: US (occurrence: US)
  Receive Date: 20180201
  Receipt Date: 20180309
  Transmission Date: 20180509
  Serious: Yes (Other)
  Sender: FDA-Public Use
  Company Number: US-GEHC-2018CSU000409

PATIENT
  Age: 20 Year
  Sex: Male
  Weight: 58.5 kg

DRUGS (5)
  1. LIDOCAINE. [Concomitant]
     Active Substance: LIDOCAINE
     Indication: SEDATIVE THERAPY
     Dosage: UNK
     Route: 058
     Dates: start: 20180123, end: 20180123
  2. HEPARINIZED SALINE [Concomitant]
     Active Substance: HEPARIN SODIUM
     Indication: SEDATIVE THERAPY
     Dosage: UNK
     Route: 042
     Dates: start: 20180123, end: 20180123
  3. MIDAZOLAM [Concomitant]
     Active Substance: MIDAZOLAM HYDROCHLORIDE
     Indication: SEDATIVE THERAPY
     Dosage: UNK
     Route: 042
     Dates: start: 20180123, end: 20180123
  4. FENTANYL. [Concomitant]
     Active Substance: FENTANYL
     Indication: SEDATIVE THERAPY
     Dosage: UNK
     Route: 042
     Dates: start: 20180123, end: 20180123
  5. OMNIPAQUE [Suspect]
     Active Substance: IOHEXOL
     Indication: PRODUCT USED FOR UNKNOWN INDICATION
     Dosage: 60 ML, SINGLE
     Route: 042
     Dates: start: 20180123, end: 20180123

REACTIONS (3)
  - Unresponsive to stimuli [Recovered/Resolved]
  - Ocular hyperaemia [Recovered/Resolved]
  - Chills [Recovered/Resolved]

NARRATIVE: CASE EVENT DATE: 20180123
